FAERS Safety Report 13864718 (Version 9)
Quarter: 2018Q3

REPORT INFORMATION
  Report Type: Spontaneous
  Country: US (occurrence: US)
  Receive Date: 20170814
  Receipt Date: 20180704
  Transmission Date: 20181010
  Serious: Yes (Hospitalization, Other)
  Sender: FDA-Public Use
  Company Number: US-PFIZER INC-2017298877

PATIENT
  Age: 50 Year
  Sex: Male
  Weight: 108.84 kg

DRUGS (4)
  1. SUTENT [Suspect]
     Active Substance: SUNITINIB MALATE
     Dosage: 50 MG, CYCLIC, (DAY 1?28 Q 42 DAYS)
     Route: 048
     Dates: start: 20170630
  2. SUTENT [Suspect]
     Active Substance: SUNITINIB MALATE
     Dosage: 50 MG, CYCLIC, (DAY 1?28 Q 42 DAYS)
     Route: 048
     Dates: start: 20170630
  3. SUTENT [Suspect]
     Active Substance: SUNITINIB MALATE
     Dosage: 50 MG, CYCLIC (DAYS 1?28, EVERY 28 DAYS)
     Route: 048
  4. SUTENT [Suspect]
     Active Substance: SUNITINIB MALATE
     Indication: RENAL CELL CARCINOMA
     Dosage: 50 MG, CYCLIC (DAYS 1?28, EVERY 42 DAYS)
     Route: 048
     Dates: start: 20170630

REACTIONS (31)
  - Paranasal sinus discomfort [Unknown]
  - Dry skin [Unknown]
  - Malaise [Unknown]
  - Gastrooesophageal reflux disease [Unknown]
  - Vomiting [Unknown]
  - Erythema [Unknown]
  - Skin exfoliation [Recovering/Resolving]
  - Erectile dysfunction [Unknown]
  - Hiatus hernia [Unknown]
  - Back pain [Unknown]
  - Neoplasm progression [Unknown]
  - Rash pruritic [Unknown]
  - Scrotal pain [Unknown]
  - Hypersensitivity [Unknown]
  - Cellulitis [Unknown]
  - Skin burning sensation [Unknown]
  - Genital rash [Recovering/Resolving]
  - Arthralgia [Unknown]
  - Dyspepsia [Unknown]
  - Headache [Unknown]
  - Sinus congestion [Unknown]
  - Abdominal pain [Unknown]
  - Dysgeusia [Unknown]
  - Glossodynia [Unknown]
  - Influenza [Unknown]
  - Omphalitis [Unknown]
  - Burn oral cavity [Unknown]
  - Rash macular [Unknown]
  - Fluid retention [Recovered/Resolved]
  - Fatigue [Unknown]
  - Pain of skin [Unknown]

NARRATIVE: CASE EVENT DATE: 2017
